FAERS Safety Report 9383403 (Version 2)
Quarter: 2013Q3

REPORT INFORMATION
  Report Type: Report from Study
  Country: DE (occurrence: DE)
  Receive Date: 20130704
  Receipt Date: 20130802
  Transmission Date: 20140515
  Serious: Yes (Death, Other)
  Sender: FDA-Public Use
  Company Number: DE-ROCHE-1244523

PATIENT
  Age: 73 Year
  Sex: Male

DRUGS (5)
  1. BEVACIZUMAB [Suspect]
     Indication: COLON CANCER
     Route: 042
     Dates: start: 20130606, end: 20130606
  2. CAPECITABINE [Suspect]
     Indication: COLON CANCER
     Route: 048
     Dates: start: 20130606, end: 20130606
  3. IRINOTECAN [Suspect]
     Indication: COLON CANCER
     Route: 042
     Dates: start: 20130606, end: 20130606
  4. GRANISETRON HYDROCHLORIDE [Concomitant]
     Indication: NAUSEA
     Dosage: ON DAY 1 AND 8 OF EACH CYCLE
     Route: 042
     Dates: start: 20130606, end: 20130606
  5. ATROPIN [Concomitant]
     Dosage: ON DAY 1 AND 8 OF EACH CYCLE
     Route: 042
     Dates: start: 20130606, end: 20130606

REACTIONS (4)
  - Arterial haemorrhage [Fatal]
  - Jaundice cholestatic [Unknown]
  - Malignant neoplasm progression [Unknown]
  - Gastrooesophageal reflux disease [Unknown]
